FAERS Safety Report 9625775 (Version 1)
Quarter: 2013Q4

REPORT INFORMATION
  Report Type: Spontaneous
  Country: US (occurrence: US)
  Receive Date: 20131016
  Receipt Date: 20131016
  Transmission Date: 20140711
  Serious: No
  Sender: FDA-Public Use
  Company Number: US-009507513-1310USA005571

PATIENT
  Sex: Male

DRUGS (1)
  1. AFRIN NO DRIP [Suspect]
     Indication: RHINORRHOEA
     Dosage: 4 DF, ONCE
     Route: 048

REACTIONS (3)
  - Feeling jittery [Unknown]
  - Restlessness [Unknown]
  - Overdose [Unknown]
